FAERS Safety Report 22637346 (Version 3)
Quarter: 2025Q3

REPORT INFORMATION
  Report Type: Report from Study
  Country: KR (occurrence: KR)
  Receive Date: 20230626
  Receipt Date: 20250813
  Transmission Date: 20251021
  Serious: Yes (Other)
  Sender: TAKEDA
  Company Number: KR-TAKEDA-2023TUS061049

PATIENT
  Age: 33 Year
  Sex: Male
  Weight: 63 kg

DRUGS (5)
  1. VEDOLIZUMAB [Suspect]
     Active Substance: VEDOLIZUMAB
     Indication: Colitis ulcerative
  2. Solondo [Concomitant]
     Indication: Colitis ulcerative
     Dosage: 5 MILLIGRAM, QD
     Dates: start: 20210612, end: 20210902
  3. Solondo [Concomitant]
     Dosage: 5 MILLIGRAM, QD
     Dates: start: 20220105, end: 20220304
  4. MESALAMINE [Concomitant]
     Active Substance: MESALAMINE
     Dosage: UNK UNK, BID
     Dates: start: 20210409
  5. AZATHIOPRINE [Concomitant]
     Active Substance: AZATHIOPRINE
     Dosage: UNK UNK, QD
     Dates: start: 20210521

REACTIONS (1)
  - Colitis ulcerative [Recovered/Resolved]

NARRATIVE: CASE EVENT DATE: 20220105
